FAERS Safety Report 7112682-4 (Version None)
Quarter: 2010Q4

REPORT INFORMATION
  Report Type: 
  Country: None (occurrence: None)
  Receive Date: 20101119
  Receipt Date: 20101105
  Transmission Date: 20110411
  Serious: Yes (Other)
  Sender: FDA-Public Use
  Company Number: PHFR2010GB05212

PATIENT
  Sex: Female

DRUGS (5)
  1. CLOZARIL [Suspect]
     Indication: SCHIZOPHRENIA
     Dosage: UNK
     Route: 048
     Dates: start: 20080130, end: 20101103
  2. INTERFERON [Concomitant]
  3. PEGASYS [Concomitant]
     Dosage: 180 UG /WEEK
  4. RIBAVIRIN [Concomitant]
     Dosage: 600 MG AT NIGHT
  5. ARIPIPRAZOLE [Concomitant]

REACTIONS (9)
  - CANDIDIASIS [None]
  - HEART RATE INCREASED [None]
  - HEPATITIS C [None]
  - MENTAL IMPAIRMENT [None]
  - NASOPHARYNGITIS [None]
  - NEUTROPHIL COUNT DECREASED [None]
  - OROPHARYNGEAL PAIN [None]
  - PLATELET COUNT DECREASED [None]
  - WHITE BLOOD CELL COUNT DECREASED [None]
